FAERS Safety Report 6106135-X (Version None)
Quarter: 2009Q1

REPORT INFORMATION
  Report Type: 
  Country: None (occurrence: None)
  Receive Date: 20090306
  Receipt Date: 20090224
  Transmission Date: 20090719
  Serious: Yes (Other)
  Sender: FDA-Public Use
  Company Number: US-PFIZER INC-2009176431

PATIENT
  Sex: Female
  Weight: 64.853 kg

DRUGS (1)
  1. DILANTIN-125 [Suspect]
     Indication: CONVULSION
     Dates: start: 19881119, end: 19881119

REACTIONS (1)
  - HYPERSENSITIVITY [None]
